FAERS Safety Report 10822634 (Version 1)
Quarter: 2015Q1

REPORT INFORMATION
  Report Type: Spontaneous
  Country: US (occurrence: US)
  Receive Date: 20150218
  Receipt Date: 20150218
  Transmission Date: 20150721
  Serious: No
  Sender: FDA-Public Use
  Company Number: US-BRISTOL-MYERS SQUIBB COMPANY-BMS-2015-006948

PATIENT
  Sex: Female

DRUGS (1)
  1. BARACLUDE [Suspect]
     Active Substance: ENTECAVIR
     Indication: HEPATITIS B
     Dosage: N/A
     Route: 048

REACTIONS (4)
  - Insomnia [Unknown]
  - Ear disorder [Unknown]
  - Headache [Unknown]
  - Toothache [Unknown]

NARRATIVE: CASE EVENT DATE: 2014
